FAERS Safety Report 13174339 (Version 1)
Quarter: 2017Q1

REPORT INFORMATION
  Report Type: Spontaneous
  Country: NO (occurrence: NO)
  Receive Date: 20170201
  Receipt Date: 20170201
  Transmission Date: 20170428
  Serious: Yes (Other)
  Sender: FDA-Public Use
  Company Number: NO-PFIZER INC-2017043226

PATIENT

DRUGS (1)
  1. DOXEPIN HCL [Suspect]
     Active Substance: DOXEPIN HYDROCHLORIDE
     Dosage: UNK
     Route: 063

REACTIONS (3)
  - Sedation [Unknown]
  - Respiratory arrest [Unknown]
  - Exposure during breast feeding [Unknown]
